FAERS Safety Report 16841887 (Version 2)
Quarter: 2019Q3

REPORT INFORMATION
  Report Type: Spontaneous
  Country: US (occurrence: US)
  Receive Date: 20190923
  Receipt Date: 20190923
  Transmission Date: 20191005
  Serious: Yes (Hospitalization, Other)
  Sender: FDA-Public Use
  Company Number: US-GILEAD-2019-0429852

PATIENT
  Age: 60 Year
  Sex: Male

DRUGS (1)
  1. BIKTARVY [Suspect]
     Active Substance: BICTEGRAVIR SODIUM\EMTRICITABINE\TENOFOVIR ALAFENAMIDE FUMARATE
     Indication: PRODUCT USED FOR UNKNOWN INDICATION
     Route: 065

REACTIONS (7)
  - Syncope [Recovered/Resolved]
  - Dehydration [Unknown]
  - Renal impairment [Unknown]
  - Product packaging issue [Unknown]
  - Product storage error [Unknown]
  - Fluid retention [Unknown]
  - Portal hypertension [Unknown]

NARRATIVE: CASE EVENT DATE: 2019
